FAERS Safety Report 21323780 (Version 4)
Quarter: 2022Q4

REPORT INFORMATION
  Report Type: Report from Study
  Country: CN (occurrence: CN)
  Receive Date: 20220912
  Receipt Date: 20221011
  Transmission Date: 20230112
  Serious: Yes (Life-Threatening, Hospitalization)
  Sender: FDA-Public Use
  Company Number: CN-AstraZeneca-2022-48040

PATIENT
  Age: 59 Year
  Sex: Male

DRUGS (71)
  1. TRASTUZUMAB DERUXTECAN [Suspect]
     Active Substance: TRASTUZUMAB DERUXTECAN
     Indication: HER2 positive gastric cancer
     Dosage: 6.4 MG/KG, ONCE EVERY 3 WK
     Route: 042
     Dates: start: 20220629, end: 20220629
  2. CAPECITABINE [Suspect]
     Active Substance: CAPECITABINE
     Indication: HER2 positive gastric cancer
     Dosage: 1000 MG/M2, ONCE EVERY 3 WK
     Route: 048
     Dates: start: 20220629, end: 20220629
  3. CAPECITABINE [Suspect]
     Active Substance: CAPECITABINE
     Dosage: 1000 MG/M2, ONCE EVERY 3 WK
     Route: 048
     Dates: start: 20220630, end: 20220630
  4. CAPECITABINE [Suspect]
     Active Substance: CAPECITABINE
     Dosage: 1000 MG/M2, ONCE EVERY 3 WK
     Route: 048
     Dates: start: 20220701, end: 20220701
  5. CAPECITABINE [Suspect]
     Active Substance: CAPECITABINE
     Dosage: 1000 MG/M2, ONCE EVERY 3 WK
     Route: 048
     Dates: start: 20220702, end: 20220703
  6. CAPECITABINE [Suspect]
     Active Substance: CAPECITABINE
     Dosage: 1000 MG/M2, ONCE EVERY 3 WK
     Route: 048
     Dates: start: 20220704, end: 20220704
  7. PEMBROLIZUMAB [Suspect]
     Active Substance: PEMBROLIZUMAB
     Indication: HER2 positive gastric cancer
     Dosage: 200 MG, ONCE EVERY 3 WK
     Route: 042
     Dates: start: 20220629, end: 20220629
  8. ENTERAL NUTRITIONAL POWDER (TP) [Concomitant]
     Indication: Nutritional supplementation
     Dosage: 40 G, QD
     Route: 048
     Dates: start: 20220616, end: 20220720
  9. ESOMEPRAZOLE SODIUM [Concomitant]
     Active Substance: ESOMEPRAZOLE SODIUM
     Indication: Stoma care
     Dosage: 20 MG, QD
     Route: 048
     Dates: start: 20220616, end: 20220706
  10. OXYCODONE HYDROCHLORIDE [Concomitant]
     Active Substance: OXYCODONE HYDROCHLORIDE
     Indication: Analgesic therapy
     Dosage: 10 MG, ONCE EVERY 12HR
     Route: 048
     Dates: start: 20220623
  11. VITAMIN B6 [Concomitant]
     Active Substance: PYRIDOXINE HYDROCHLORIDE
     Indication: Vitamin supplementation
     Dosage: 0 G, QD
     Route: 042
     Dates: start: 20220628, end: 20220630
  12. VITAMIN B6 [Concomitant]
     Active Substance: PYRIDOXINE HYDROCHLORIDE
     Dosage: 0 MG, QD
     Route: 042
     Dates: start: 20220706, end: 20220707
  13. VITAMIN C [Concomitant]
     Active Substance: ASCORBIC ACID
     Indication: Vitamin supplementation
     Dosage: 2 G, QD
     Route: 042
     Dates: start: 20220628, end: 20220630
  14. VITAMIN C [Concomitant]
     Active Substance: ASCORBIC ACID
     Dosage: 3 G, QD
     Route: 042
     Dates: start: 20220706, end: 20220707
  15. PANTOPRAZOLE SODIUM [PANTOPRAZOLE SODIUM SESQUIHYDRATE] [Concomitant]
     Indication: Stoma care
     Dosage: 40 MG, QD
     Route: 042
     Dates: start: 20220628, end: 20220630
  16. MAGNESIUM ISOGLYCYRRHIZINATE [Concomitant]
     Active Substance: MAGNESIUM ISOGLYCYRRHIZINATE
     Indication: Liver transplant rejection
     Dosage: 150 MG, QD
     Route: 042
     Dates: start: 20220628, end: 20220630
  17. SODIUM CHLORIDE [Concomitant]
     Active Substance: SODIUM CHLORIDE
     Indication: Dehydration
     Dosage: 10 MG, QD
     Route: 042
     Dates: start: 20220628, end: 20220629
  18. SODIUM CHLORIDE [Concomitant]
     Active Substance: SODIUM CHLORIDE
     Dosage: 500 MG, QD
     Route: 042
     Dates: start: 20220708, end: 20220708
  19. SODIUM CHLORIDE [Concomitant]
     Active Substance: SODIUM CHLORIDE
     Dosage: 200 ML, QD
     Route: 042
     Dates: start: 20220708, end: 20220708
  20. GLYCERIN [Concomitant]
     Active Substance: GLYCERIN
     Indication: Constipation
     Dosage: 80 ML, TOTAL
     Route: 054
     Dates: start: 20220628, end: 20220628
  21. GLYCERIN [Concomitant]
     Active Substance: GLYCERIN
     Indication: Obstructive defaecation
     Dosage: 100 ML, TOTAL
     Route: 054
     Dates: start: 20220630, end: 20220630
  22. FOSAPREPITANT DIMEGLUMINE [Concomitant]
     Active Substance: FOSAPREPITANT DIMEGLUMINE
     Indication: Prophylaxis
     Dosage: 0 G, QD
     Route: 042
     Dates: start: 20220629, end: 20220629
  23. DEXAMETHASONE SODIUM PHOSPHATE [Concomitant]
     Active Substance: DEXAMETHASONE SODIUM PHOSPHATE
     Indication: Hypersensitivity
     Dosage: 5 MG, QD
     Route: 042
     Dates: start: 20220629, end: 20220629
  24. DEXAMETHASONE SODIUM PHOSPHATE [Concomitant]
     Active Substance: DEXAMETHASONE SODIUM PHOSPHATE
     Dosage: 5 MG, QD
     Route: 042
     Dates: start: 20220707, end: 20220707
  25. DIPHENHYDRAMINE HYDROCHLORIDE [Concomitant]
     Active Substance: DIPHENHYDRAMINE HYDROCHLORIDE
     Indication: Prophylaxis
     Dosage: 20 MG, QD
     Route: 030
     Dates: start: 20220629, end: 20220629
  26. DIPHENHYDRAMINE HYDROCHLORIDE [Concomitant]
     Active Substance: DIPHENHYDRAMINE HYDROCHLORIDE
     Indication: Vomiting
     Dosage: 200 G, QD
     Route: 042
     Dates: start: 20220707, end: 20220708
  27. DIPHENHYDRAMINE HYDROCHLORIDE [Concomitant]
     Active Substance: DIPHENHYDRAMINE HYDROCHLORIDE
     Indication: Nausea
  28. ONDANSETRON HYDROCHLORIDE [Concomitant]
     Active Substance: ONDANSETRON HYDROCHLORIDE
     Indication: Vomiting
     Dosage: 8 MG, QD
     Route: 048
     Dates: start: 20220630, end: 20220704
  29. SEGESTERONE ACETATE [Concomitant]
     Active Substance: SEGESTERONE ACETATE
     Indication: Vomiting
     Dosage: 160 MG, TOTAL
     Route: 048
     Dates: start: 20220705, end: 20220706
  30. OMEPRAZOLE [Concomitant]
     Active Substance: OMEPRAZOLE
     Indication: Stoma care
     Dosage: 40 MG, BID
     Route: 042
     Dates: start: 20220706, end: 20220707
  31. AMLODIPINE BESYLATE [Concomitant]
     Active Substance: AMLODIPINE BESYLATE
     Indication: Hypertension
     Dosage: 5 MG, TOTAL
     Route: 048
  32. MAGNESIUM ASPARTATE\POTASSIUM ASPARTATE [Concomitant]
     Active Substance: MAGNESIUM ASPARTATE\POTASSIUM ASPARTATE
     Indication: Dehydration
     Dosage: 20 MG, TOTAL
     Route: 042
     Dates: start: 20220706, end: 20220707
  33. ROXATIDINE ACETATE HYDROCHLORIDE [Concomitant]
     Active Substance: ROXATIDINE ACETATE HYDROCHLORIDE
     Indication: Protein total
     Dosage: 150 MG, TOTAL
     Route: 042
     Dates: start: 20220706, end: 20220706
  34. ROXATIDINE ACETATE HYDROCHLORIDE [Concomitant]
     Active Substance: ROXATIDINE ACETATE HYDROCHLORIDE
     Dosage: 75 ML, TOTAL
     Route: 042
     Dates: start: 20220707, end: 20220707
  35. HEPARIN SODIUM [Concomitant]
     Active Substance: HEPARIN SODIUM
     Indication: Prophylaxis
     Dosage: 1.3 OTHER ONCE/, SINGLE
     Route: 042
     Dates: start: 20220706, end: 20220707
  36. HEPARIN SODIUM [Concomitant]
     Active Substance: HEPARIN SODIUM
     Dosage: 2 ML, TOTAL
     Route: 042
     Dates: start: 20220708, end: 20220708
  37. MAGNESIUM ISOGLYCYRRHIZINATE [Concomitant]
     Active Substance: MAGNESIUM ISOGLYCYRRHIZINATE
     Indication: Aspartate aminotransferase increased
     Dosage: 200 MG, TOTAL
     Route: 042
     Dates: start: 20220706, end: 20220707
  38. COMPOUND AMINO ACID INJECTION (14AA) [Concomitant]
     Indication: Dehydration
     Dosage: 500 ML, TOTAL
     Route: 042
     Dates: start: 20220706, end: 20220706
  39. COMPOUND AMINO ACID INJECTION (14AA) [Concomitant]
     Indication: Hypoalbuminaemia
     Dosage: 250 MG, TOTAL
     Route: 042
     Dates: start: 20220707, end: 20220707
  40. SODIUM POTASSIUM MAGNESIUM CALCIUM AND GLUCOSE [Concomitant]
     Indication: Dehydration
     Dosage: 1000 ML, TOTAL
     Route: 042
     Dates: start: 20220706, end: 20220706
  41. SODIUM POTASSIUM MAGNESIUM CALCIUM AND GLUCOSE [Concomitant]
     Dosage: 750 MG, TOTAL
     Route: 042
     Dates: start: 20220707, end: 20220707
  42. DEXTROSE\SODIUM CHLORIDE [Concomitant]
     Active Substance: DEXTROSE\SODIUM CHLORIDE
     Indication: Dehydration
     Dosage: 250 ML, TOTAL
     Route: 042
     Dates: start: 20220706, end: 20220706
  43. DEXTROSE\SODIUM CHLORIDE [Concomitant]
     Active Substance: DEXTROSE\SODIUM CHLORIDE
     Dosage: 1000 ML, TOTAL
     Route: 042
     Dates: start: 20220708, end: 20220708
  44. GLUTATHIONE [Concomitant]
     Active Substance: GLUTATHIONE
     Indication: Liver transplant rejection
     Dosage: 1 G, TOTAL
     Route: 042
     Dates: start: 20220706, end: 20220707
  45. FUROSEMIDE [Concomitant]
     Active Substance: FUROSEMIDE
     Indication: Polyuria
     Dosage: 20 MG, TOTAL
     Route: 042
     Dates: start: 20220706, end: 20220707
  46. POTASSIUM CHLORIDE [Concomitant]
     Active Substance: POTASSIUM CHLORIDE
     Indication: Electrolyte substitution therapy
     Dosage: 1 MG, TOTAL
     Route: 042
     Dates: start: 20220706, end: 20220707
  47. POTASSIUM CHLORIDE [Concomitant]
     Active Substance: POTASSIUM CHLORIDE
     Indication: Hypokalaemia
  48. METOCLOPRAMIDE HYDROCHLORIDE [Concomitant]
     Active Substance: METOCLOPRAMIDE HYDROCHLORIDE
     Indication: Vomiting
     Dosage: 100 MG, TOTAL
     Route: 042
     Dates: start: 20220706, end: 20220707
  49. METOCLOPRAMIDE HYDROCHLORIDE [Concomitant]
     Active Substance: METOCLOPRAMIDE HYDROCHLORIDE
     Indication: Nausea
     Dosage: 10 MG, TOTAL
     Route: 030
     Dates: start: 20220708, end: 20220708
  50. METOCLOPRAMIDE HYDROCHLORIDE [Concomitant]
     Active Substance: METOCLOPRAMIDE HYDROCHLORIDE
     Indication: Protein total
  51. CEFTRIAXONE SODIUM [Concomitant]
     Active Substance: CEFTRIAXONE SODIUM
     Indication: Pyrexia
     Dosage: 1 G, TOTAL
     Route: 042
     Dates: start: 20220707, end: 20220708
  52. BARBITONE [BARBITAL SODIUM] [Concomitant]
     Indication: Product used for unknown indication
     Dosage: UNK
     Route: 042
  53. SODIUM CHLORIDE [Concomitant]
     Active Substance: SODIUM CHLORIDE
     Indication: Dehydration
     Dosage: 1 G, TOTAL
     Route: 042
     Dates: start: 20220707, end: 20220707
  54. SODIUM CHLORIDE [Concomitant]
     Active Substance: SODIUM CHLORIDE
     Indication: Hyponatraemia
  55. SODIUM CHLORIDE [Concomitant]
     Active Substance: SODIUM CHLORIDE
     Indication: Blood chloride decreased
  56. TROPISETRON HYDROCHLORIDE [Concomitant]
     Active Substance: TROPISETRON HYDROCHLORIDE
     Indication: Vomiting
     Dosage: 5 MG, TOTAL
     Route: 042
     Dates: start: 20220707, end: 20220708
  57. INDOMETHACIN [Concomitant]
     Active Substance: INDOMETHACIN
     Indication: Coagulopathy
     Dosage: 0 MG, TOTAL
     Route: 054
     Dates: start: 20220708, end: 20220708
  58. PEGYLATED GRANULOCYTE COLONY STIMULATING FACTOR [Concomitant]
     Indication: White blood cell count decreased
     Dosage: 300 UG, TOTAL
     Route: 058
     Dates: start: 20220708, end: 20220708
  59. AMMONIUM CHLORIDE [Concomitant]
     Active Substance: AMMONIUM CHLORIDE
     Indication: Radiotherapy to oral cavity
     Dosage: 15 MG, ONCE EVERY 8HR
     Route: 050
     Dates: start: 20220708, end: 20220708
  60. SODIUM BICARBONATE [Concomitant]
     Active Substance: SODIUM BICARBONATE
     Indication: Dehydration
     Dosage: 13 G, TOTAL
     Route: 042
     Dates: start: 20220708, end: 20220708
  61. CEFOPERAZONE SODIUM\SULBACTAM SODIUM [Concomitant]
     Active Substance: CEFOPERAZONE SODIUM\SULBACTAM SODIUM
     Indication: Coagulopathy
     Dosage: 3 G, TOTAL
     Route: 042
     Dates: start: 20220708, end: 20220708
  62. GRANULOCYTE COLONY-STIMULATING FACTOR NOS [Concomitant]
     Active Substance: GRANULOCYTE COLONY-STIMULATING FACTOR NOS
     Indication: White blood cell count decreased
     Dosage: 400 MG, TOTAL
     Route: 058
     Dates: start: 20220708, end: 20220711
  63. BACILLUS SUBTILIS [Concomitant]
     Active Substance: BACILLUS SUBTILIS
     Indication: Constipation
     Dosage: 250 MG, TOTAL
     Route: 048
     Dates: start: 20220708
  64. FOSAPREPITANT [Concomitant]
     Active Substance: FOSAPREPITANT
     Indication: Nausea
     Dosage: 0 G, SINGLE
     Route: 042
     Dates: start: 20220708, end: 20220708
  65. ESOMEPRAZOLE SODIUM [Concomitant]
     Active Substance: ESOMEPRAZOLE SODIUM
     Indication: Gastric disorder
     Dosage: 40 MG, TOTAL
     Route: 042
     Dates: start: 20220708, end: 20220708
  66. SODIUM BICARBONATE [Concomitant]
     Active Substance: SODIUM BICARBONATE
     Indication: Dehydration
     Dosage: 5 ML, TOTAL
     Route: 042
     Dates: start: 20220708, end: 20220718
  67. LIDOCAINE HYDROCHLORIDE [Concomitant]
     Active Substance: LIDOCAINE HYDROCHLORIDE
     Indication: Analgesic therapy
     Dosage: 1 MG, TOTAL
     Route: 058
     Dates: start: 20220708, end: 20220708
  68. DL- LACTIC ACID;TOCOPHEROL;UREA [Concomitant]
     Indication: Obstructive defaecation
     Dosage: 80 ML
     Route: 065
     Dates: start: 20220628, end: 20220628
  69. HERBALS [Concomitant]
     Active Substance: HERBALS
     Indication: Acquired immunodeficiency syndrome
     Dosage: 100 ML
     Route: 065
     Dates: start: 20220630, end: 20220630
  70. AMOBARBITAL [Concomitant]
     Active Substance: AMOBARBITAL
     Indication: Coagulopathy
     Dosage: 20 ML
     Route: 065
     Dates: start: 20220707, end: 20220707
  71. ASCORBIC ACID;BACILLUS SUBTILIS;CALCIUM LACTATE;CYANOCOBALAMIN;ENTEROC [Concomitant]
     Indication: Constipation
     Dosage: 250 MG
     Route: 065
     Dates: start: 20220708

REACTIONS (2)
  - Neutrophil count decreased [Recovered/Resolved]
  - White blood cell count decreased [Recovered/Resolved]

NARRATIVE: CASE EVENT DATE: 20220708
